FAERS Safety Report 24985081 (Version 1)
Quarter: 2025Q1

REPORT INFORMATION
  Report Type: Spontaneous
  Country: LT (occurrence: LT)
  Receive Date: 20250219
  Receipt Date: 20250219
  Transmission Date: 20250409
  Serious: Yes (Other)
  Sender: MERCK SHARP & DOHME LLC
  Company Number: LT-BAYER-2025A021363

PATIENT
  Age: 80 Year
  Sex: Female

DRUGS (6)
  1. VERQUVO [Suspect]
     Active Substance: VERICIGUAT
     Indication: Cardiac failure congestive
     Dosage: 2.5 MG, QD
  2. TORSEMIDE [Concomitant]
     Active Substance: TORSEMIDE
  3. SPIRONOLACTONE [Concomitant]
     Active Substance: SPIRONOLACTONE
     Dosage: 25 MG, QD
  4. CARVEDILOL [Concomitant]
     Active Substance: CARVEDILOL
     Dosage: 6.25 MG, BID
  5. APIXABAN [Concomitant]
     Active Substance: APIXABAN
     Dosage: 2.5 MG, BID
     Route: 048
  6. DAPAGLIFLOZIN [Concomitant]
     Active Substance: DAPAGLIFLOZIN
     Dosage: 10 MG, QD

REACTIONS (5)
  - General physical health deterioration [Unknown]
  - Cardiac failure congestive [Unknown]
  - Ascites [Unknown]
  - Oedema peripheral [Unknown]
  - Hypotension [Unknown]
